FAERS Safety Report 5420708-9 (Version None)
Quarter: 2007Q3

REPORT INFORMATION
  Report Type: 
  Country: None (occurrence: None)
  Receive Date: 20070816
  Receipt Date: 20070720
  Transmission Date: 20080115
  Serious: Yes (Life-Threatening)
  Sender: FDA-Public Use
  Company Number: 6031413

PATIENT
  Age: 33 Year
  Sex: Female

DRUGS (23)
  1. FLUCONAZOLE [Suspect]
     Indication: PNEUMONITIS
     Dosage: 100 MG (100 MG,1 IN 1 D), INTRAVENOUS ; 200 MG (200 MG,1 IN 1 D), INTRAVENOUS
     Route: 042
  2. DOMPERIDONE (DOMPERIDONE) [Suspect]
     Indication: IMPAIRED GASTRIC EMPTYING
     Dosage: 180 MG (180 MG,1 IN 1 D)
  3. ALPRAZOLAM [Concomitant]
  4. CITALOPRAM HYDROBROMIDE [Concomitant]
  5. DOXAZOSIN (DOXAZOSIN) [Concomitant]
  6. FELODIPINE [Concomitant]
  7. LOSARTAN POTASSIUM [Concomitant]
  8. METOPROLOL TARTRATE [Concomitant]
  9. NADROPARIN (NADROPARIN) [Concomitant]
  10. OXAZEPAM [Concomitant]
  11. PANTOPRAZOLE SODIUM [Concomitant]
  12. PREDNISOLONE [Concomitant]
  13. ACETAMINOPHEN [Concomitant]
  14. ACYCLOVIR 200 MG TABLET (ACICLOVIR) [Concomitant]
  15. MAGNESIUM (MAGNESIUM) [Concomitant]
  16. POTASSIUM CHLORIDE [Concomitant]
  17. AMOXICILLIN + CLAVULANIC ACID (AMOXICILLIN, CLAVULINC ACID) [Concomitant]
  18. GENTAMICIN [Concomitant]
  19. CALCIUM (CALCIUM) [Concomitant]
  20. FUROSEMIDE [Concomitant]
  21. VANCOMYCIN [Concomitant]
  22. PIRITRAMIDE (PIRITRAMIDE) [Concomitant]
  23. SHORT ACTING INSULIN (INSULIN) [Concomitant]

REACTIONS (5)
  - BRADYCARDIA [None]
  - DRUG INTERACTION [None]
  - ELECTROCARDIOGRAM QT PROLONGED [None]
  - RENAL IMPAIRMENT [None]
  - TORSADE DE POINTES [None]
